FAERS Safety Report 25467058 (Version 1)
Quarter: 2025Q2

REPORT INFORMATION
  Report Type: Spontaneous
  Country: US (occurrence: US)
  Receive Date: 20250623
  Receipt Date: 20250623
  Transmission Date: 20250716
  Serious: Yes (Other)
  Sender: CSL BEHRING
  Company Number: US-BEH-2025209461

PATIENT
  Age: 58 Year
  Sex: Female

DRUGS (1)
  1. HIZENTRA [Suspect]
     Active Substance: HUMAN IMMUNOGLOBULIN G
     Dosage: 70 MG, QW
     Route: 065

REACTIONS (5)
  - Neuropathy peripheral [Unknown]
  - Infusion site haematoma [Recovered/Resolved]
  - Peripheral swelling [Unknown]
  - Infusion site pain [Unknown]
  - Oedema [Unknown]
